FAERS Safety Report 7086954-6 (Version None)
Quarter: 2010Q4

REPORT INFORMATION
  Report Type: 
  Country: None (occurrence: None)
  Receive Date: 20101106
  Receipt Date: 20100923
  Transmission Date: 20110411
  Serious: No
  Sender: FDA-Public Use
  Company Number: US-WYE-H16846410

PATIENT
  Sex: Female

DRUGS (6)
  1. PREMARIN [Suspect]
     Indication: HOT FLUSH
     Dosage: 0.5 MG
     Route: 048
     Dates: start: 20070101
  2. PREMARIN [Suspect]
     Dosage: 0.9MG
     Route: 048
     Dates: start: 20080101
  3. VITAMIN D [Concomitant]
  4. FISH OIL [Concomitant]
  5. VITAMIN B [Concomitant]
  6. LIPITOR [Suspect]
     Indication: BLOOD CHOLESTEROL INCREASED
     Dosage: UNKNOWN
     Route: 048

REACTIONS (3)
  - BLOOD CHOLESTEROL INCREASED [None]
  - DRUG INEFFECTIVE [None]
  - PRODUCT QUALITY ISSUE [None]
